FAERS Safety Report 10908057 (Version 1)
Quarter: 2015Q1

REPORT INFORMATION
  Report Type: Spontaneous
  Country: US (occurrence: None)
  Receive Date: 20150309
  Receipt Date: 20150309
  Transmission Date: 20150721
  Serious: Yes (Hospitalization)
  Sender: FDA-Public Use
  Company Number: None

PATIENT
  Age: 64 Year
  Sex: Male
  Weight: 140.5 kg

DRUGS (1)
  1. IBRUTINIB [Suspect]
     Active Substance: IBRUTINIB
     Indication: MANTLE CELL LYMPHOMA
     Route: 048
     Dates: start: 20140815, end: 20140828

REACTIONS (8)
  - Diarrhoea [None]
  - Atrial fibrillation [None]
  - Mental status changes [None]
  - Acute kidney injury [None]
  - Pneumonia [None]
  - Haemodialysis [None]
  - Asthenia [None]
  - Delirium [None]

NARRATIVE: CASE EVENT DATE: 20140828
